FAERS Safety Report 10743711 (Version 1)
Quarter: 2015Q1

REPORT INFORMATION
  Report Type: Spontaneous
  Country: TR (occurrence: TR)
  Receive Date: 20150128
  Receipt Date: 20150128
  Transmission Date: 20150721
  Serious: Yes (Other)
  Sender: FDA-Public Use
  Company Number: TR-ACCORD-028237

PATIENT
  Age: 65 Year
  Sex: Male

DRUGS (1)
  1. CLOPIDOGREL [Suspect]
     Active Substance: CLOPIDOGREL BISULFATE
     Indication: CORONARY ARTERY DISEASE

REACTIONS (3)
  - Renal injury [Unknown]
  - Renal haemorrhage [Recovering/Resolving]
  - Haemoglobin decreased [None]
